FAERS Safety Report 25198956 (Version 5)
Quarter: 2025Q4

REPORT INFORMATION
  Report Type: Report from Study
  Country: TW (occurrence: TW)
  Receive Date: 20250415
  Receipt Date: 20251115
  Transmission Date: 20260118
  Serious: Yes (Death, Hospitalization, Other)
  Sender: TAKEDA
  Company Number: TW-TAKEDA-2025TUS036716

PATIENT
  Age: 60 Year
  Sex: Female
  Weight: 51 kg

DRUGS (1)
  1. MOBOCERTINIB [Suspect]
     Active Substance: MOBOCERTINIB
     Indication: EGFR gene mutation
     Dosage: UNK, QD
     Dates: start: 20231110, end: 20250324

REACTIONS (9)
  - Sputum retention [Fatal]
  - Respiratory failure [Fatal]
  - Asthenia [Fatal]
  - Gastritis [Unknown]
  - Pleural effusion [Unknown]
  - Lung adenocarcinoma [Unknown]
  - Abdominal pain upper [Recovered/Resolved]
  - Rash [Recovered/Resolved]
  - Diarrhoea [Recovered/Resolved]

NARRATIVE: CASE EVENT DATE: 20231205
